FAERS Safety Report 5721007-8 (Version None)
Quarter: 2008Q2

REPORT INFORMATION
  Report Type: 
  Country: None (occurrence: None)
  Receive Date: 20080429
  Receipt Date: 20080424
  Transmission Date: 20081010
  Serious: Yes (Death)
  Sender: FDA-Public Use
  Company Number: GR-WYE-H03200808

PATIENT
  Age: 75 Year
  Sex: Male

DRUGS (2)
  1. TIGECYCLINE [Suspect]
     Indication: SOFT TISSUE INFECTION
  2. TIGECYCLINE [Suspect]
     Indication: KLEBSIELLA BACTERAEMIA

REACTIONS (4)
  - DRUG INEFFECTIVE [None]
  - GASTROINTESTINAL HAEMORRHAGE [None]
  - KLEBSIELLA BACTERAEMIA [None]
  - SEPTIC SHOCK [None]
